FAERS Safety Report 23565965 (Version 1)
Quarter: 2024Q1

REPORT INFORMATION
  Report Type: Spontaneous
  Country: US (occurrence: None)
  Receive Date: 20240225
  Receipt Date: 20240225
  Transmission Date: 20240409
  Serious: Yes (Other)
  Sender: FDA-Public Use
  Company Number: None

PATIENT
  Age: 29 Year
  Sex: Female
  Weight: 99 kg

DRUGS (3)
  1. PAXLOVID [Suspect]
     Active Substance: NIRMATRELVIR\RITONAVIR
     Indication: COVID-19
     Dates: start: 20240202, end: 20240206
  2. ZYRTEC [Concomitant]
     Active Substance: CETIRIZINE HYDROCHLORIDE
  3. one a day womens multivitamin [Concomitant]

REACTIONS (2)
  - COVID-19 [None]
  - SARS-CoV-2 test positive [None]

NARRATIVE: CASE EVENT DATE: 20240211
